FAERS Safety Report 19488865 (Version 1)
Quarter: 2021Q3

REPORT INFORMATION
  Report Type: Spontaneous
  Country: US (occurrence: US)
  Receive Date: 20210702
  Receipt Date: 20210702
  Transmission Date: 20211014
  Serious: No
  Sender: FDA-Public Use
  Company Number: US-BAUSCH-BL-2021-018589

PATIENT
  Age: 64 Year
  Sex: Female

DRUGS (8)
  1. ALLEGRA [Concomitant]
     Active Substance: FEXOFENADINE HYDROCHLORIDE
     Indication: PRODUCT USED FOR UNKNOWN INDICATION
     Dosage: DOSE, UNITS, FREQUENCY: AS DIRECTED
     Route: 048
  2. ALBUTEROL INHALER [Concomitant]
     Active Substance: ALBUTEROL
     Indication: PRODUCT USED FOR UNKNOWN INDICATION
     Dosage: DOSE, UNITS, FREQUENCY: AS DIRECTED
     Route: 055
  3. LOSARTAN. [Concomitant]
     Active Substance: LOSARTAN
     Indication: PRODUCT USED FOR UNKNOWN INDICATION
     Dosage: DOSE, UNITS, FREQUENCY: AS DIRECTED
     Route: 048
  4. TIMOLOL/DORZOLAMIDE PRESERVATIVE FREE [Concomitant]
     Indication: PRODUCT USED FOR UNKNOWN INDICATION
     Dosage: DOSE, UNITS, FREQUENCY: AS DIRECTED
     Route: 047
  5. LEVOTHYROXINE. [Concomitant]
     Active Substance: LEVOTHYROXINE
     Indication: PRODUCT USED FOR UNKNOWN INDICATION
     Dosage: DOSE, UNITS, FREQUENCY: AS DIRECTED
     Route: 048
  6. ALAWAY PRESERVATIVE FREE [Suspect]
     Active Substance: KETOTIFEN FUMARATE
     Indication: SEASONAL ALLERGY
     Route: 047
     Dates: start: 20210520, end: 20210520
  7. ALVESCO [Concomitant]
     Active Substance: CICLESONIDE
     Indication: PRODUCT USED FOR UNKNOWN INDICATION
     Dosage: DOSE, UNITS, FREQUENCY: AS DIRECTED
     Route: 055
  8. COMPOUNDED HORMONE CREAM PROGESTERONE AND ESTROGEN [Concomitant]
     Indication: PRODUCT USED FOR UNKNOWN INDICATION
     Dosage: DOSE, UNITS, FREQUENCY: AS DIRECTED
     Route: 061

REACTIONS (7)
  - Eye irritation [Unknown]
  - Feeling hot [Unknown]
  - Eyelid disorder [Unknown]
  - Eye pruritus [Unknown]
  - Ocular discomfort [Unknown]
  - Eye swelling [Recovering/Resolving]
  - Eye pain [Unknown]

NARRATIVE: CASE EVENT DATE: 202105
